FAERS Safety Report 7579512-8 (Version None)
Quarter: 2011Q2

REPORT INFORMATION
  Report Type: 
  Country: None (occurrence: None)
  Receive Date: 20110629
  Receipt Date: 20110613
  Transmission Date: 20111010
  Serious: Yes (Death, Other)
  Sender: FDA-Public Use
  Company Number: US-BAYER-201041839NA

PATIENT
  Age: 15 Day
  Sex: Male
  Weight: 3.32 kg

DRUGS (26)
  1. TRASYLOL [Suspect]
     Indication: VENTRICULAR SEPTAL DEFECT REPAIR
  2. INSULIN [Concomitant]
     Dosage: 0.05 UNITS/KG/HR
     Route: 042
     Dates: start: 20071010
  3. PLATELETS [Concomitant]
     Dosage: 70 CC
     Dates: start: 20071010
  4. ALBUMIN (HUMAN) [Concomitant]
     Dosage: 5% 35 ML X1
     Route: 042
     Dates: start: 20071010
  5. FENTANYL [Concomitant]
     Dosage: UNK
     Dates: start: 20071010
  6. FENTANYL [Concomitant]
     Dosage: 6 MCG/KG/HR
     Route: 042
     Dates: start: 20071013
  7. HEPARIN [Concomitant]
     Dosage: 300 U, UNK
     Route: 042
     Dates: start: 20071002
  8. CEFEPIME [Concomitant]
     Dosage: 100 MG Q12H
     Route: 042
     Dates: start: 20071010
  9. RED BLOOD CELLS [Concomitant]
     Dosage: 2 U, UNK
     Dates: start: 20071010
  10. CRYOPRECIPITATES [Concomitant]
     Dosage: 60 CC
     Dates: start: 20071010
  11. TRASYLOL [Suspect]
     Indication: PATENT DUCTUS ARTERIOSUS REPAIR
  12. METHYLPREDNISOLONE [Concomitant]
     Dosage: 96 MG, UNK
     Route: 042
     Dates: start: 20071009
  13. AMPICILLIN SODIUM [Concomitant]
     Dosage: 0.02 MCG/KG/MIN/335 MG Q12 H
     Route: 042
     Dates: start: 20071002
  14. FUROSEMIDE [Concomitant]
     Dosage: 3.5 MG, UNK
     Route: 042
     Dates: start: 20071010
  15. FENTANYL [Concomitant]
     Dosage: UNK
     Dates: start: 20071013
  16. PROTAMINE SULFATE [Concomitant]
     Dosage: 16 MG, UNK
     Route: 042
     Dates: start: 20071010
  17. REGULAR INSULIN [Concomitant]
     Dosage: 4 MCG/KG/HR 1ST STAT INFUSION
     Route: 042
     Dates: start: 20071011
  18. CEFEPIME [Concomitant]
     Dosage: 100 MG, UNK
     Route: 042
     Dates: start: 20071011
  19. TRASYLOL [Suspect]
     Indication: ATRIAL SEPTAL DEFECT REPAIR
  20. METHYLPREDNISOLONE [Concomitant]
     Dosage: 23.4 MG
     Route: 042
     Dates: start: 20071010
  21. CLAFORAN [Concomitant]
     Route: 042
  22. FRESH FROZEN PLASMA [Concomitant]
     Dosage: 1 U, UNK
     Dates: start: 20071010
  23. TRASYLOL [Suspect]
     Indication: ARTERIAL SWITCH OPERATION
     Route: 042
     Dates: start: 20071010
  24. EPINEPHRINE [Concomitant]
     Dosage: 0.02 MCG/KG FOR TOTAL 0.32 MCG
     Route: 042
     Dates: start: 20071010
  25. FENTANYL [Concomitant]
     Dosage: 6 MCG/KG/HR X3 DAYS
     Route: 042
     Dates: start: 20071002
  26. CEFAZOLIN [Concomitant]
     Dosage: 143 MG
     Route: 042
     Dates: start: 20071010

REACTIONS (12)
  - RENAL FAILURE [None]
  - RENAL IMPAIRMENT [None]
  - INJURY [None]
  - PAIN [None]
  - RENAL INJURY [None]
  - MULTI-ORGAN FAILURE [None]
  - EMOTIONAL DISTRESS [None]
  - ANXIETY [None]
  - DEATH [None]
  - STRESS [None]
  - UNEVALUABLE EVENT [None]
  - FEAR [None]
